FAERS Safety Report 25932162 (Version 1)
Quarter: 2025Q4

REPORT INFORMATION
  Report Type: Spontaneous
  Country: GB (occurrence: GB)
  Receive Date: 20251016
  Receipt Date: 20251016
  Transmission Date: 20260117
  Serious: Yes (Other)
  Sender: MERCK SHARP & DOHME LLC
  Company Number: None

PATIENT
  Age: 47 Year
  Sex: Female
  Weight: 53 kg

DRUGS (5)
  1. SUGAMMADEX [Suspect]
     Active Substance: SUGAMMADEX
     Indication: Adverse drug reaction
     Dosage: 1000MG
     Route: 065
     Dates: start: 20250919
  2. PROPOFOL [Concomitant]
     Active Substance: PROPOFOL
     Dates: start: 20250919, end: 20250919
  3. ROCURONIUM [Concomitant]
     Active Substance: ROCURONIUM BROMIDE
     Dates: start: 20250919, end: 20250919
  4. METARAMINOL [Concomitant]
     Active Substance: METARAMINOL
     Dates: start: 20250919, end: 20250919
  5. FENTANYL [Concomitant]
     Active Substance: FENTANYL
     Dates: start: 20250919, end: 20250919

REACTIONS (2)
  - Anaphylactic shock [Unknown]
  - Urinary incontinence [Recovered/Resolved]

NARRATIVE: CASE EVENT DATE: 20250921
